FAERS Safety Report 7029926-X (Version None)
Quarter: 2010Q4

REPORT INFORMATION
  Report Type: 
  Country: None (occurrence: None)
  Receive Date: 20101006
  Receipt Date: 20100930
  Transmission Date: 20110411
  Serious: Yes (Hospitalization)
  Sender: FDA-Public Use
  Company Number: BR-ELI_LILLY_AND_COMPANY-BR201009008071

PATIENT
  Sex: Female
  Weight: 55 kg

DRUGS (10)
  1. GEMCITABINE HCL [Suspect]
     Indication: BREAST CANCER METASTATIC
     Dosage: 1000 MG/M2, OTHER
     Route: 042
     Dates: start: 20100330
  2. PACLITAXEL [Suspect]
     Indication: BREAST CANCER METASTATIC
     Dosage: 175 MG/M2, OTHER
     Route: 042
     Dates: start: 20100330, end: 20100826
  3. AMITRIPTILINA [Concomitant]
     Dates: start: 20100308
  4. CARBAMAZEPINE [Concomitant]
     Dates: start: 20100308, end: 20100703
  5. DIMORF [Concomitant]
     Dates: start: 20100304
  6. OMEPRAZOLE [Concomitant]
     Dates: start: 20100330
  7. PROPRANOLOL [Concomitant]
     Dates: start: 20100427, end: 20100427
  8. DIAZEPAM [Concomitant]
     Dates: start: 20100622
  9. FERROUS SULFATE [Concomitant]
     Dates: start: 20100608
  10. VITAMIN B [Concomitant]
     Dates: start: 20100720

REACTIONS (1)
  - PNEUMONIA [None]
